FAERS Safety Report 11134382 (Version 3)
Quarter: 2015Q2

REPORT INFORMATION
  Report Type: Report from Study
  Country: US (occurrence: US)
  Receive Date: 20150525
  Receipt Date: 20150630
  Transmission Date: 20150821
  Serious: Yes (Hospitalization)
  Sender: FDA-Public Use
  Company Number: US-ALEXION-A201501849

PATIENT

DRUGS (1)
  1. SOLIRIS [Suspect]
     Active Substance: ECULIZUMAB
     Indication: HAEMOLYTIC URAEMIC SYNDROME
     Route: 042

REACTIONS (6)
  - Discomfort [Unknown]
  - Cough [Unknown]
  - Unevaluable event [Unknown]
  - Lower respiratory tract infection [Recovered/Resolved]
  - Wheezing [Unknown]
  - Insomnia [Unknown]

NARRATIVE: CASE EVENT DATE: 20150515
